FAERS Safety Report 6614363-X (Version None)
Quarter: 2010Q1

REPORT INFORMATION
  Report Type: 
  Country: None (occurrence: None)
  Receive Date: 20100304
  Receipt Date: 20100219
  Transmission Date: 20100710
  Serious: Yes (Hospitalization, Disabling, Other)
  Sender: FDA-Public Use
  Company Number: FR-CELGENEUS-056-50794-10020281

PATIENT
  Sex: Female
  Weight: 50 kg

DRUGS (2)
  1. VIDAZA [Suspect]
     Route: 050
     Dates: start: 20091013, end: 20091215
  2. PARACETAMOL [Concomitant]
     Indication: PAIN
     Route: 065

REACTIONS (2)
  - BONE MARROW FAILURE [None]
  - NEUROPATHY PERIPHERAL [None]
